FAERS Safety Report 8447002-6 (Version None)
Quarter: 2012Q2

REPORT INFORMATION
  Report Type: 
  Country: None (occurrence: None)
  Receive Date: 20120619
  Receipt Date: 20120612
  Transmission Date: 20120825
  Serious: No
  Sender: FDA-Public Use
  Company Number: US-BAYER-2012-038581

PATIENT
  Age: 45 Year
  Sex: Female
  Weight: 153.29 kg

DRUGS (4)
  1. MIRENA [Suspect]
     Indication: MENORRHAGIA
     Dosage: 20 MCG/24HR, CONT
     Route: 015
     Dates: start: 20110426, end: 20120410
  2. FISH [Concomitant]
     Dosage: DAILY DOSE 1000 MG
  3. MULTI-VITAMIN [Concomitant]
  4. GLUCOSAMINE W/CHONDROITIN SULFATE [Concomitant]

REACTIONS (1)
  - DEVICE EXPULSION [None]
